FAERS Safety Report 6637801-5 (Version None)
Quarter: 2010Q1

REPORT INFORMATION
  Report Type: 
  Country: None (occurrence: None)
  Receive Date: 20100312
  Receipt Date: 20100304
  Transmission Date: 20100710
  Serious: Yes (Other)
  Sender: FDA-Public Use
  Company Number: DSA_42572_2010

PATIENT
  Sex: Female
  Weight: 65.318 kg

DRUGS (12)
  1. DILTIAZEM HCL [Suspect]
     Indication: ATRIAL FIBRILLATION
     Dosage: 60 MG TID ORAL
     Route: 048
     Dates: start: 20090630
  2. WARFARIN SODIUM [Suspect]
     Indication: DRUG USE FOR UNKNOWN INDICATION
     Dosage: 4 MG QD ORAL
     Route: 048
     Dates: start: 20090630
  3. JANTOVEN [Suspect]
     Indication: DRUG USE FOR UNKNOWN INDICATION
     Dosage: TWICE A WEEK, FIVE DAYS A WEEK, SEVEN DAYS A WEEK
  4. TRIAMTERENE AND HYDROCHLOROTHIAZIDE [Concomitant]
  5. KLOR-CON [Concomitant]
  6. NEXIUM [Concomitant]
  7. FEXOFENADINE [Concomitant]
  8. BABY ASPIRIN [Concomitant]
  9. CALTRATE /00108001/ [Concomitant]
  10. VITAMINS [Concomitant]
  11. EXELON [Concomitant]
  12. FUROSEMIDE [Concomitant]

REACTIONS (2)
  - CARBOHYDRATE ANTIGEN 125 INCREASED [None]
  - DEMENTIA [None]
